FAERS Safety Report 16116531 (Version 1)
Quarter: 2019Q1

REPORT INFORMATION
  Report Type: Spontaneous
  Country: US (occurrence: US)
  Receive Date: 20190326
  Receipt Date: 20190326
  Transmission Date: 20190418
  Serious: No
  Sender: FDA-Public Use
  Company Number: US-ZYDUS-026219

PATIENT
  Age: 74 Year
  Sex: Female

DRUGS (1)
  1. ATENOLOL. [Suspect]
     Active Substance: ATENOLOL
     Indication: PALPITATIONS
     Dosage: 1/2 TABLET ONCE DAILY
     Route: 048
     Dates: start: 20180702, end: 20180823

REACTIONS (1)
  - Dizziness [Unknown]
